FAERS Safety Report 9975909 (Version 1)
Quarter: 2014Q1

REPORT INFORMATION
  Report Type: Spontaneous
  Country: US (occurrence: US)
  Receive Date: 20140306
  Receipt Date: 20140306
  Transmission Date: 20141002
  Serious: No
  Sender: FDA-Public Use
  Company Number: US-PFIZER INC-2014060176

PATIENT
  Sex: Male

DRUGS (3)
  1. ZYVOX [Suspect]
     Dosage: UNK
  2. FLUCONAZOLE [Suspect]
     Dosage: UNK
  3. COUMADINE [Suspect]
     Dosage: UNK

REACTIONS (1)
  - International normalised ratio increased [Unknown]
